FAERS Safety Report 9015860 (Version 1)
Quarter: 2013Q1

REPORT INFORMATION
  Report Type: Spontaneous
  Country: IT (occurrence: None)
  Receive Date: 20130103
  Receipt Date: 20130103
  Transmission Date: 20140127
  Serious: Yes (Hospitalization)
  Sender: FDA-Public Use
  Company Number: AUR-APL-2012-05664

PATIENT
  Age: 47 Year
  Sex: Female

DRUGS (2)
  1. MIRTAZAPINE (MIRTAZAPINE) [Suspect]
     Indication: HEADACHE
     Dosage: (15 MG, TOTAL)
     Route: 048
     Dates: start: 20121130, end: 20121130
  2. TRIATEC (RAMIPRIL) [Concomitant]

REACTIONS (1)
  - Tremor [None]
